FAERS Safety Report 12749551 (Version 4)
Quarter: 2017Q3

REPORT INFORMATION
  Report Type: Spontaneous
  Country: JP (occurrence: JP)
  Receive Date: 20160916
  Receipt Date: 20170808
  Transmission Date: 20171127
  Serious: Yes (Hospitalization, Other)
  Sender: FDA-Public Use
  Company Number: PHHY2016JP126750

PATIENT
  Age: 81 Year
  Sex: Male

DRUGS (2)
  1. ZOMETA [Suspect]
     Active Substance: ZOLEDRONIC ACID
     Indication: METASTASES TO BONE
     Dosage: 4 MG, UNK
     Route: 042
     Dates: start: 20111220, end: 20120515
  2. RANMARK [Suspect]
     Active Substance: DENOSUMAB
     Indication: METASTASES TO BONE
     Dosage: 120 MG, UNK
     Route: 042
     Dates: start: 20121106, end: 20130221

REACTIONS (13)
  - Bone disorder [Recovering/Resolving]
  - Osteonecrosis of jaw [Recovering/Resolving]
  - Feeding disorder [Unknown]
  - Exposed bone in jaw [Unknown]
  - Lymph node pain [Unknown]
  - Purulence [Unknown]
  - Gingival swelling [Unknown]
  - Gingival erythema [Unknown]
  - Subcutaneous abscess [Unknown]
  - Lymphadenopathy [Unknown]
  - Cellulitis [Recovered/Resolved]
  - Gingival pain [Unknown]
  - Cellulitis [Recovering/Resolving]

NARRATIVE: CASE EVENT DATE: 20121206
